FAERS Safety Report 6376073-6 (Version None)
Quarter: 2009Q3

REPORT INFORMATION
  Report Type: 
  Country: None (occurrence: None)
  Receive Date: 20090918
  Receipt Date: 20090904
  Transmission Date: 20100115
  Serious: Yes (Hospitalization, Other)
  Sender: FDA-Public Use
  Company Number: WAES 0909KOR00018

PATIENT

DRUGS (1)
  1. VYTORIN [Suspect]

REACTIONS (1)
  - CHEST PAIN [None]
